FAERS Safety Report 9413571 (Version 1)
Quarter: 2013Q2

REPORT INFORMATION
  Report Type: Spontaneous
  Country: JP (occurrence: None)
  Receive Date: 20130627
  Receipt Date: 20130627
  Transmission Date: 20140414
  Serious: Yes (Hospitalization)
  Sender: FDA-Public Use
  Company Number: TCI2012A00794

PATIENT
  Age: 70 Year
  Sex: Male

DRUGS (2)
  1. NESINA [Suspect]
     Indication: DIABETES MELLITUS
     Route: 048
     Dates: start: 20120124, end: 20120217
  2. DAONIL (GLIBENCLAMIDE) [Concomitant]

REACTIONS (10)
  - Interstitial lung disease [None]
  - Cardiac failure [None]
  - Influenza A virus test positive [None]
  - Pneumonia influenzal [None]
  - Pyrexia [None]
  - Cough [None]
  - Lung consolidation [None]
  - Pneumonia bacterial [None]
  - Lymphocyte stimulation test positive [None]
  - Oxygen saturation decreased [None]
